FAERS Safety Report 9049007 (Version 1)
Quarter: 2013Q1

REPORT INFORMATION
  Report Type: Spontaneous
  Country: GB (occurrence: None)
  Receive Date: 20130117
  Receipt Date: 20130117
  Transmission Date: 20140127
  Serious: Yes (Hospitalization)
  Sender: FDA-Public Use
  Company Number: DSA_61855_2013

PATIENT
  Age: 73 Year
  Sex: Male

DRUGS (5)
  1. METRONIDAZOLE (METRONIDAZOLE) [Suspect]
     Indication: PRODUCT USED FOR UNKNOWN INDICATION
     Dates: start: 20110305, end: 20110306
  2. TEICOPLANIN [Suspect]
     Indication: PRODUCT USED FOR UNKNOWN INDICATION
     Dates: start: 20110305, end: 20110305
  3. FLUCLOXACILLIN (FLUCLOXACILLIN) [Suspect]
     Indication: ULCER
     Dates: start: 20110302, end: 20110306
  4. CLAVULIN [Suspect]
     Indication: STREPTOCOCCAL SEPSIS
     Dates: start: 20110306, end: 20110313
  5. PIPERACILLIN/TAZOBACTAM [Suspect]
     Indication: PRODUCT USED FOR UNKNOWN INDICATION
     Dates: start: 20110316, end: 20110317

REACTIONS (4)
  - Clostridium difficile infection [None]
  - Norovirus test positive [None]
  - Diarrhoea [None]
  - Vomiting [None]
